FAERS Safety Report 13750262 (Version 1)
Quarter: 2017Q3

REPORT INFORMATION
  Report Type: Spontaneous
  Country: US (occurrence: US)
  Receive Date: 20170713
  Receipt Date: 20170713
  Transmission Date: 20171127
  Serious: No
  Sender: FDA-Public Use
  Company Number: US-ASTELLAS-2016US028562

PATIENT
  Sex: Female

DRUGS (1)
  1. MYRBETRIQ [Suspect]
     Active Substance: MIRABEGRON
     Indication: POLLAKIURIA
     Route: 048

REACTIONS (7)
  - Weight decreased [Recovering/Resolving]
  - Dry mouth [Not Recovered/Not Resolved]
  - Abdominal discomfort [Unknown]
  - Dry eye [Not Recovered/Not Resolved]
  - Wrong technique in product usage process [Unknown]
  - Oral mucosal blistering [Recovering/Resolving]
  - Intentional product misuse [Unknown]

NARRATIVE: CASE EVENT DATE: 201603
